FAERS Safety Report 26196305 (Version 1)
Quarter: 2025Q4

REPORT INFORMATION
  Report Type: Spontaneous
  Country: US (occurrence: US)
  Receive Date: 20251224
  Receipt Date: 20251224
  Transmission Date: 20260117
  Serious: Yes (Death, Life-Threatening, Hospitalization, Other)
  Sender: ALKEM
  Company Number: US-ALKEM LABORATORIES LIMITED-US-ALKEM-2025-13413

PATIENT
  Age: 29 Year
  Sex: Male

DRUGS (2)
  1. COLCHICINE [Suspect]
     Active Substance: COLCHICINE
     Indication: Myopericarditis
     Dosage: 0.6 MILLIGRAM (TABLETS) (HALF A BOTTLE)
     Route: 048
  2. CARVEDILOL [Suspect]
     Active Substance: CARVEDILOL
     Indication: Myopericarditis
     Dosage: 12 DOSAGE FORM (PILLS)
     Route: 048

REACTIONS (18)
  - Cardiogenic shock [Fatal]
  - Distributive shock [Fatal]
  - Acute respiratory distress syndrome [Fatal]
  - Hepatic failure [Fatal]
  - Acute kidney injury [Fatal]
  - Tachycardia [Fatal]
  - Right ventricular dysfunction [Fatal]
  - Respiratory acidosis [Fatal]
  - Metabolic acidosis [Fatal]
  - Hypotension [Fatal]
  - Altered state of consciousness [Fatal]
  - Suicide attempt [Fatal]
  - Abdominal symptom [Fatal]
  - Myelosuppression [Fatal]
  - Leukocytosis [Fatal]
  - Multiple organ dysfunction syndrome [Fatal]
  - Intentional overdose [Fatal]
  - Toxicity to various agents [Fatal]
